FAERS Safety Report 14655072 (Version 1)
Quarter: 2018Q1

REPORT INFORMATION
  Report Type: Spontaneous
  Country: JP (occurrence: JP)
  Receive Date: 20180319
  Receipt Date: 20180319
  Transmission Date: 20180509
  Serious: Yes (Other)
  Sender: FDA-Public Use
  Company Number: JP-OTSUKA-2018_006652

PATIENT
  Age: 5 Year
  Weight: 20.9 kg

DRUGS (4)
  1. BUSULFEX [Suspect]
     Active Substance: BUSULFAN
     Indication: BONE MARROW CONDITIONING REGIMEN
     Dosage: 4.4 MG/KG, QD
     Route: 041
  2. ANTITHYMOCYTE IMMUNOGLOBULIN (RABBIT) [Concomitant]
     Active Substance: LAPINE T-LYMPHOCYTE IMMUNE GLOBULIN
     Indication: BONE MARROW CONDITIONING REGIMEN
     Dosage: 1.25 MG/KG, DAILY DOSE
     Route: 065
  3. CLONAZEPAM. [Concomitant]
     Active Substance: CLONAZEPAM
     Indication: PRODUCT USED FOR UNKNOWN INDICATION
     Dosage: UNK
     Route: 065
  4. FLUDARABINE PHOSPHATE. [Concomitant]
     Active Substance: FLUDARABINE PHOSPHATE
     Indication: BONE MARROW CONDITIONING REGIMEN
     Dosage: 40 MG/M2, DAILY DOSE
     Route: 065

REACTIONS (5)
  - Cough [Unknown]
  - Mucous membrane disorder [Unknown]
  - Epstein-Barr virus associated lymphoproliferative disorder [Unknown]
  - Hyperkalaemia [Unknown]
  - Inappropriate schedule of drug administration [Unknown]
